FAERS Safety Report 19783475 (Version 1)
Quarter: 2021Q3

REPORT INFORMATION
  Report Type: Spontaneous
  Country: IT (occurrence: IT)
  Receive Date: 20210902
  Receipt Date: 20210902
  Transmission Date: 20211014
  Serious: Yes (Hospitalization, Other)
  Sender: FDA-Public Use
  Company Number: IT-PURDUE-USA-2021-0282961

PATIENT
  Age: 50 Year
  Sex: Male

DRUGS (23)
  1. NON?PMN MORPHINE SULFATE [Suspect]
     Active Substance: MORPHINE SULFATE
     Dosage: UNK [LOW DOSE]
     Route: 058
     Dates: start: 20200323
  2. MIDAZOLAM. [Concomitant]
     Active Substance: MIDAZOLAM
     Indication: ANXIOLYTIC THERAPY
     Dosage: 9.5 MG, DAILY [BOLUSES/ ESCALATING INFUSION RATES]
     Dates: start: 20200329
  3. MIDAZOLAM. [Concomitant]
     Active Substance: MIDAZOLAM
     Dosage: UNK [CONTINUOUS INFUSION]
     Dates: start: 20200326
  4. METHYLPREDNISOLONE. [Concomitant]
     Active Substance: METHYLPREDNISOLONE
     Indication: COVID-19
     Dosage: 20 MG, DAILY
     Route: 042
     Dates: start: 20200327
  5. PARACETAMOL [Concomitant]
     Active Substance: ACETAMINOPHEN
     Indication: COVID-19
     Dosage: UNK
     Route: 065
     Dates: start: 202003
  6. HYDROCORTISONE. [Concomitant]
     Active Substance: HYDROCORTISONE
     Indication: DIALYSIS RELATED COMPLICATION
     Dosage: UNK, [HYDROCORTISONE BOLUS]
     Route: 065
     Dates: start: 20200327
  7. LINEZOLID. [Concomitant]
     Active Substance: LINEZOLID
     Indication: COVID-19
     Dosage: UNK
     Route: 065
     Dates: start: 202003
  8. TOCILIZUMAB. [Concomitant]
     Active Substance: TOCILIZUMAB
     Indication: COVID-19
     Dosage: 400 MG, UNK
     Route: 065
     Dates: start: 202003
  9. HEPARIN CALCIUM [Concomitant]
     Active Substance: HEPARIN CALCIUM
     Indication: COVID-19
     Dosage: 5 IU, Q8H
     Route: 065
     Dates: start: 20200327
  10. OXYGEN. [Concomitant]
     Active Substance: OXYGEN
     Indication: COVID-19
     Dosage: UNK
     Route: 065
     Dates: start: 20200317
  11. PREDNISOLONE. [Concomitant]
     Active Substance: PREDNISOLONE
     Indication: PRODUCT USED FOR UNKNOWN INDICATION
     Dosage: 2.5 MG, 2 DAYS
     Route: 065
  12. NON?PMN MORPHINE SULFATE [Suspect]
     Active Substance: MORPHINE SULFATE
     Dosage: UNK [ESCALATING INFUSION RATES, DRIP]
     Route: 065
     Dates: start: 20200329
  13. NON?PMN MORPHINE SULFATE [Suspect]
     Active Substance: MORPHINE SULFATE
     Dosage: UNK [CONTINUOUS INFUSION]
     Route: 065
     Dates: start: 20200327
  14. NON?PMN MORPHINE SULFATE [Suspect]
     Active Substance: MORPHINE SULFATE
     Indication: AGITATION
     Dosage: UNK [12; BOLUSES]
     Route: 065
     Dates: start: 20200329
  15. NON?PMN MORPHINE SULFATE [Suspect]
     Active Substance: MORPHINE SULFATE
     Dosage: UNK [ESCALATING]
     Route: 058
     Dates: start: 20200327
  16. HYDROXYCHLOROQUINE [Concomitant]
     Active Substance: HYDROXYCHLOROQUINE
     Indication: COVID-19
     Dosage: UNK
     Route: 065
     Dates: start: 202003
  17. MEROPENEM. [Concomitant]
     Active Substance: MEROPENEM
     Indication: COVID-19
     Dosage: UNK
     Route: 065
     Dates: start: 202003
  18. LYSINE ACETYLSALICYLATE [Concomitant]
     Active Substance: ASPIRIN DL-LYSINE
     Indication: COVID-19
     Dosage: UNK
     Route: 065
     Dates: start: 202003
  19. FUROSEMIDE. [Concomitant]
     Active Substance: FUROSEMIDE
     Indication: COVID-19
     Dosage: UNK
     Route: 065
     Dates: start: 20200317
  20. MIDAZOLAM. [Concomitant]
     Active Substance: MIDAZOLAM
     Dosage: UNK [BOLUSES]
     Route: 065
     Dates: start: 20200327
  21. HEPARIN CALCIUM [Concomitant]
     Active Substance: HEPARIN CALCIUM
     Dosage: 5 IU, Q12H
     Route: 065
     Dates: start: 202003
  22. ISOSORBIDE DINITRATE. [Concomitant]
     Active Substance: ISOSORBIDE DINITRATE
     Indication: COVID-19
     Dosage: UNK
     Route: 065
     Dates: start: 20200326
  23. SODIUM HYDROGEN CARBONATE [Concomitant]
     Active Substance: SODIUM BICARBONATE
     Indication: HAEMODIALYSIS
     Dosage: UNK
     Route: 065
     Dates: start: 20200317

REACTIONS (5)
  - Fluid overload [Recovered/Resolved]
  - Drug level increased [Recovered/Resolved]
  - Product administration error [Recovered/Resolved]
  - Respiratory disorder [Recovered/Resolved]
  - Condition aggravated [Recovered/Resolved]

NARRATIVE: CASE EVENT DATE: 20200323
